FAERS Safety Report 14479949 (Version 1)
Quarter: 2018Q1

REPORT INFORMATION
  Report Type: Spontaneous
  Country: IT (occurrence: IT)
  Receive Date: 20180202
  Receipt Date: 20180202
  Transmission Date: 20180509
  Serious: Yes (Other)
  Sender: FDA-Public Use
  Company Number: IT-TEVA-749095ACC

PATIENT
  Age: 43 Year
  Sex: Female

DRUGS (3)
  1. COPAXONE [Suspect]
     Active Substance: GLATIRAMER ACETATE
     Indication: RELAPSING-REMITTING MULTIPLE SCLEROSIS
     Dosage: 40 MG/ML
     Route: 058
     Dates: start: 2016
  2. KEPPRA 750 MG FILM-COATED TABLETS [Concomitant]
     Indication: EPILEPSY
     Dosage: 2000 MILLIGRAM DAILY;
     Route: 048
  3. VIMPAT 50 MF FILM COATED TABLETS [Concomitant]
     Indication: EPILEPSY
     Dosage: 200 MILLIGRAM DAILY;
     Route: 048

REACTIONS (6)
  - Anaphylactic shock [Recovered/Resolved]
  - Dyspnoea [Recovered/Resolved]
  - Urticaria [Recovered/Resolved]
  - Pruritus [Recovered/Resolved]
  - Underdose [Unknown]
  - Flushing [Recovered/Resolved]

NARRATIVE: CASE EVENT DATE: 201702
